FAERS Safety Report 17482521 (Version 1)
Quarter: 2020Q1

REPORT INFORMATION
  Report Type: Spontaneous
  Country: CN (occurrence: CN)
  Receive Date: 20200302
  Receipt Date: 20200302
  Transmission Date: 20200409
  Serious: Yes (Hospitalization)
  Sender: FDA-Public Use
  Company Number: CN-PFIZER INC-2020084752

PATIENT
  Age: 20 Year
  Sex: Female
  Weight: 55 kg

DRUGS (6)
  1. ETOPOSIDE. [Suspect]
     Active Substance: ETOPOSIDE
     Indication: HODGKIN^S DISEASE
     Dosage: 100 MG, 1X/DAY
     Route: 041
     Dates: start: 20200214, end: 20200214
  2. SODIUM CHLORIDE. [Concomitant]
     Active Substance: SODIUM CHLORIDE
     Indication: VEHICLE SOLUTION USE
     Dosage: 100 ML, 1X/DAY
     Route: 041
     Dates: start: 20200214, end: 20200214
  3. XI AI KE [Suspect]
     Active Substance: VINDESINE SULFATE
     Indication: HODGKIN^S DISEASE
     Dosage: 4 MG, 1X/DAY
     Route: 041
     Dates: start: 20200214, end: 20200214
  4. SODIUM CHLORIDE. [Concomitant]
     Active Substance: SODIUM CHLORIDE
     Dosage: 500 ML, 1X/DAY
     Route: 041
     Dates: start: 20200214, end: 20200214
  5. PHARMORUBICIN [Suspect]
     Active Substance: EPIRUBICIN
     Indication: HODGKIN^S DISEASE
     Dosage: 120 MG, 1X/DAY
     Route: 041
     Dates: start: 20200214, end: 20200214
  6. CYCLOPHOSPHAMIDE. [Suspect]
     Active Substance: CYCLOPHOSPHAMIDE
     Indication: HODGKIN^S DISEASE
     Dosage: 1.2 G, 1X/DAY
     Route: 041
     Dates: start: 20200214, end: 20200214

REACTIONS (3)
  - Headache [Recovering/Resolving]
  - Nausea [Recovering/Resolving]
  - Vomiting [Recovering/Resolving]

NARRATIVE: CASE EVENT DATE: 20200215
